FAERS Safety Report 5254191-3 (Version None)
Quarter: 2007Q1

REPORT INFORMATION
  Report Type: 
  Country: None (occurrence: None)
  Receive Date: 20070302
  Receipt Date: 20070223
  Transmission Date: 20070707
  Serious: Yes (Hospitalization)
  Sender: FDA-Public Use
  Company Number: US-ROCHE-483980

PATIENT
  Age: 51 Year
  Sex: Female

DRUGS (3)
  1. BONIVA [Suspect]
     Indication: OSTEOPOROSIS
     Route: 042
     Dates: start: 20070205, end: 20070205
  2. AUGMENTIN [Concomitant]
     Indication: CELLULITIS
  3. BACTRIM DS [Concomitant]
     Indication: CELLULITIS

REACTIONS (6)
  - CELLULITIS [None]
  - CHILLS [None]
  - DIARRHOEA [None]
  - EXTRAVASATION [None]
  - NAUSEA [None]
  - PAIN IN EXTREMITY [None]
